FAERS Safety Report 14288856 (Version 15)
Quarter: 2019Q1

REPORT INFORMATION
  Report Type: Report from Study
  Country: FR (occurrence: FR)
  Receive Date: 20171215
  Receipt Date: 20190111
  Transmission Date: 20190417
  Serious: Yes (Death, Hospitalization)
  Sender: FDA-Public Use
  Company Number: FR-ROCHE-2033394

PATIENT
  Age: 59 Year
  Sex: Female
  Weight: 92.8 kg

DRUGS (4)
  1. SODIUM CHLORIDE. [Suspect]
     Active Substance: SODIUM CHLORIDE
     Indication: FLUID OVERLOAD
     Route: 042
     Dates: start: 20171201, end: 20171203
  2. ATEZOLIZUMAB. [Suspect]
     Active Substance: ATEZOLIZUMAB
     Indication: OVARIAN CANCER
     Dosage: MOST RECENT DOSE PRIOR TO SAE ONSET ON 09/NOV/2017 (900 MG)
     Route: 042
     Dates: start: 20170926, end: 20171127
  3. BLINDED ASPIRIN [Suspect]
     Active Substance: ASPIRIN
     Indication: OVARIAN CANCER
     Dosage: MOST RECENT DOSE PRIOR TO SAE ONSET ON 05/NOV/2017
     Route: 048
     Dates: start: 20170926, end: 20171105
  4. BEVACIZUMAB. [Suspect]
     Active Substance: BEVACIZUMAB
     Indication: OVARIAN CANCER
     Dosage: MOST RECENT DOSE PRIOR TO SAE ONSET ON 09/NOV/2017 (1275 MG)
     Route: 042
     Dates: start: 20170926, end: 20171127

REACTIONS (2)
  - Altered state of consciousness [Recovered/Resolved]
  - Acute pulmonary oedema [Fatal]

NARRATIVE: CASE EVENT DATE: 20171127
